FAERS Safety Report 9197918 (Version 2)
Quarter: 2013Q4

REPORT INFORMATION
  Report Type: Spontaneous
  Country: GR (occurrence: GR)
  Receive Date: 20130328
  Receipt Date: 20131121
  Transmission Date: 20140711
  Serious: Yes (Hospitalization)
  Sender: FDA-Public Use
  Company Number: GR-B.I. PHARMACEUTICALS,INC./RIDGEFIELD-2013-BI-08115GB

PATIENT
  Age: 70 Year
  Sex: Female

DRUGS (5)
  1. PRADAXA [Suspect]
     Indication: THROMBOSIS PROPHYLAXIS
     Dosage: 220 MG
     Route: 048
     Dates: start: 20130308, end: 20130316
  2. TEICOPLANIN [Concomitant]
     Indication: INFECTION PROPHYLAXIS
     Dates: start: 20130308
  3. CEFATRIZINE [Concomitant]
     Indication: INFECTION PROPHYLAXIS
     Dates: start: 20130308
  4. CELECOXIB [Concomitant]
     Indication: ANTIINFLAMMATORY THERAPY
     Dates: start: 20130308
  5. PRAZOLE [Concomitant]
     Indication: PROPHYLAXIS AGAINST GASTROINTESTINAL ULCER
     Dates: start: 20130308

REACTIONS (4)
  - White blood cell count decreased [Recovered/Resolved]
  - Urticaria [Recovered/Resolved]
  - Urticaria [Recovered/Resolved]
  - Urticaria [Recovered/Resolved]
